FAERS Safety Report 9374518 (Version 1)
Quarter: 2013Q2

REPORT INFORMATION
  Report Type: Spontaneous
  Country: US (occurrence: US)
  Receive Date: 20130628
  Receipt Date: 20130628
  Transmission Date: 20140414
  Serious: No
  Sender: FDA-Public Use
  Company Number: US-009507513-1306USA010921

PATIENT
  Age: 46 Year
  Sex: Female

DRUGS (5)
  1. SAPHRIS [Suspect]
     Indication: BIPOLAR I DISORDER
     Dosage: 10 MG/ ONCE DAILY AT BEDTIME
     Route: 060
     Dates: end: 20130423
  2. SAPHRIS [Suspect]
     Indication: ANXIETY DISORDER
  3. AMBIEN [Concomitant]
  4. LAMOTRIGINE [Concomitant]
  5. CLONAZEPAM [Concomitant]

REACTIONS (2)
  - Local swelling [Recovered/Resolved]
  - Inappropriate schedule of drug administration [Unknown]
